FAERS Safety Report 6095534-0 (Version None)
Quarter: 2009Q1

REPORT INFORMATION
  Report Type: 
  Country: None (occurrence: None)
  Receive Date: 20090227
  Receipt Date: 20080422
  Transmission Date: 20090719
  Serious: No
  Sender: FDA-Public Use
  Company Number: A0724111A

PATIENT
  Age: 28 Year
  Sex: Female

DRUGS (2)
  1. LAMICTAL [Suspect]
     Indication: BIPOLAR DISORDER
     Dosage: 25MG PER DAY
     Route: 048
     Dates: start: 20080412
  2. DEPAKOTE [Concomitant]

REACTIONS (11)
  - CONTUSION [None]
  - DIZZINESS [None]
  - DRY SKIN [None]
  - EPISTAXIS [None]
  - ERYTHEMA [None]
  - EYE IRRITATION [None]
  - METRORRHAGIA [None]
  - NASAL DISCOMFORT [None]
  - NAUSEA [None]
  - RASH MACULAR [None]
  - WHITE BLOOD CELL COUNT INCREASED [None]
